FAERS Safety Report 8571667 (Version 2)
Quarter: 2012Q4

REPORT INFORMATION
  Report Type: 
  Country: BR (occurrence: BR)
  Receive Date: 20120521
  Receipt Date: 20121114
  Transmission Date: 20130627
  Serious: Yes (Hospitalization, Disabling, Other)
  Sender: FDA-Public Use
  Company Number: BR-ASTRAZENECA-2012SE30885

PATIENT
  Sex: Male

DRUGS (4)
  1. BRILINTA [Suspect]
     Route: 048
     Dates: start: 201109
  2. ABLOK [Concomitant]
  3. PRESS PLUS [Concomitant]
  4. GEVRAL [Concomitant]

REACTIONS (1)
  - Thrombosis [Recovered/Resolved]
